FAERS Safety Report 17261662 (Version 1)
Quarter: 2020Q1

REPORT INFORMATION
  Report Type: Spontaneous
  Country: CA (occurrence: CA)
  Receive Date: 20200113
  Receipt Date: 20200113
  Transmission Date: 20200409
  Serious: Yes (Other)
  Sender: FDA-Public Use
  Company Number: CA-TEVA-2020-CA-1167329

PATIENT
  Age: 43 Year
  Sex: Female

DRUGS (3)
  1. MORPHINE SULFATE. [Suspect]
     Active Substance: MORPHINE SULFATE
     Indication: PRODUCT USED FOR UNKNOWN INDICATION
     Route: 065
  2. COCAINE [Suspect]
     Active Substance: COCAINE
     Indication: DRUG ABUSE
     Route: 065
  3. METHAMPHETAMINE [Suspect]
     Active Substance: METHAMPHETAMINE
     Indication: DRUG ABUSE
     Route: 065

REACTIONS (4)
  - Substance dependence [Unknown]
  - Aggression [Unknown]
  - Euphoric mood [Unknown]
  - Substance abuse [Unknown]
